FAERS Safety Report 6370920-X (Version None)
Quarter: 2009Q3

REPORT INFORMATION
  Report Type: 
  Country: None (occurrence: None)
  Receive Date: 20090923
  Receipt Date: 20070815
  Transmission Date: 20100115
  Serious: Yes (Other)
  Sender: FDA-Public Use
  Company Number: US-ASTRAZENECA-2006UW23521

PATIENT
  Sex: Female
  Weight: 118.4 kg

DRUGS (13)
  1. SEROQUEL [Suspect]
     Indication: PSYCHOTIC DISORDER
     Dosage: 25-200 MG AT NIGHT
     Route: 048
     Dates: start: 19981204
  2. LEXAPRO [Concomitant]
     Route: 065
  3. ZYPREXA [Concomitant]
     Indication: PSYCHOTIC DISORDER
     Route: 065
  4. SERZONE [Concomitant]
     Indication: DEPRESSION
     Route: 065
  5. COMBIVENT [Concomitant]
     Dosage: 1-2 PUFFS EVERY 4 TO 6 HOURLY
     Route: 065
  6. LOTEMAX [Concomitant]
     Dosage: 1 DROP IN EACH EYE TWICE DAILY
     Route: 065
  7. POTASSIUM CHLORIDE [Concomitant]
     Route: 065
  8. FUROSEMIDE [Concomitant]
     Route: 065
  9. NABUMETONE [Concomitant]
     Route: 065
  10. NAPROXEN SODIUM [Concomitant]
     Route: 065
  11. REMERON [Concomitant]
     Route: 065
  12. AMITRIPTYLINE HYDROCHLORIDE [Concomitant]
     Route: 065
  13. SINEQUAN [Concomitant]
     Route: 065

REACTIONS (3)
  - KETOACIDOSIS [None]
  - PANCREATITIS [None]
  - TYPE 1 DIABETES MELLITUS [None]
